FAERS Safety Report 6815792-1 (Version None)
Quarter: 2010Q3

REPORT INFORMATION
  Report Type: 
  Country: None (occurrence: None)
  Receive Date: 20100705
  Receipt Date: 20100625
  Transmission Date: 20110219
  Serious: Yes (Hospitalization)
  Sender: FDA-Public Use
  Company Number: JP-MERCK-1006USA00943

PATIENT
  Age: 74 Year
  Sex: Female
  Weight: 65 kg

DRUGS (16)
  1. JANUVIA [Suspect]
     Indication: TYPE 2 DIABETES MELLITUS
     Route: 048
     Dates: start: 20100416, end: 20100502
  2. FLUITRAN [Concomitant]
     Indication: HYPERTENSION
     Route: 048
     Dates: end: 20100502
  3. ASPARA K [Concomitant]
     Indication: HYPOKALAEMIA
     Dosage: DIVIDED DOSE FREQUENCY U
     Route: 048
  4. BAYCARON [Concomitant]
     Indication: HYPERTENSION
     Dosage: DIVIDED DOSE FREQUENCY U
     Route: 048
  5. COZAAR [Concomitant]
     Indication: HYPERTENSION
     Route: 048
  6. TAKEPRON [Concomitant]
     Dosage: DIVIDED DOSE FREQUENCY U
     Route: 048
  7. DOXAZOSIN MESYLATE [Concomitant]
     Indication: HYPERTENSION
     Route: 048
     Dates: end: 20100502
  8. ZYLORIC [Concomitant]
     Indication: HYPERURICAEMIA
     Dosage: DIVIDED DOSE FREQUENCY U
     Route: 048
  9. URALYT [Concomitant]
     Indication: PROPHYLAXIS
     Dosage: DIVIDED DOSE FREQUENCY U
     Route: 048
  10. WARFARIN POTASSIUM [Concomitant]
     Indication: DEEP VEIN THROMBOSIS
     Dosage: DIVIDED DOSE FREQUENCY U
     Route: 048
     Dates: start: 20091101
  11. PURSENNID [Concomitant]
     Indication: CONSTIPATION
     Route: 048
  12. DEPAS [Concomitant]
     Indication: INSOMNIA
     Dosage: DIVIDED DOSE FREQUENCY U
     Route: 048
  13. MAGMITT [Concomitant]
     Indication: CONSTIPATION
     Route: 048
  14. ANPLAG [Concomitant]
     Indication: ARTERIOSCLEROSIS OBLITERANS
     Route: 048
     Dates: start: 20091105
  15. LAXOBERON [Concomitant]
     Indication: CONSTIPATION
     Dosage: DAILY DOSAGE UNKNOWN
     Route: 048
     Dates: end: 20100502
  16. POSTERISAN [Concomitant]
     Indication: HAEMORRHOIDS
     Route: 054

REACTIONS (2)
  - ENTEROCOLITIS [None]
  - WRONG TECHNIQUE IN DRUG USAGE PROCESS [None]
